FAERS Safety Report 5607447-6 (Version None)
Quarter: 2008Q1

REPORT INFORMATION
  Report Type: 
  Country: None (occurrence: None)
  Receive Date: 20080125
  Receipt Date: 20080116
  Transmission Date: 20080703
  Serious: Yes (Hospitalization)
  Sender: FDA-Public Use
  Company Number: 2007BI027219

PATIENT
  Age: 1 Day

DRUGS (1)
  1. AVONEX [Suspect]
     Indication: MULTIPLE SCLEROSIS
     Dosage: 30 UG; QW; TRPL
     Route: 064
     Dates: start: 19961101, end: 20000501

REACTIONS (2)
  - BRONCHOPULMONARY DYSPLASIA [None]
  - DRUG EXPOSURE DURING PREGNANCY [None]
